FAERS Safety Report 19013209 (Version 1)
Quarter: 2021Q1

REPORT INFORMATION
  Report Type: Spontaneous
  Country: US (occurrence: US)
  Receive Date: 20210315
  Receipt Date: 20210315
  Transmission Date: 20210420
  Serious: Yes (Hospitalization, Other)
  Sender: FDA-Public Use
  Company Number: US-SA-2021SA087342

PATIENT
  Age: 83 Year
  Sex: Female
  Weight: 59.8 kg

DRUGS (11)
  1. WARFARIN SODIUM. [Suspect]
     Active Substance: WARFARIN SODIUM
     Dosage: 5.0 MG 1 TABLET
     Route: 048
     Dates: end: 20210225
  2. PLAVIX [Suspect]
     Active Substance: CLOPIDOGREL BISULFATE
     Dosage: 75 MG, QD
     Dates: start: 2010, end: 20210210
  3. LANTUS [Concomitant]
     Active Substance: INSULIN GLARGINE
     Dosage: 30 UNITS (AM/PM)
  4. HEPARIN [HEPARIN SODIUM] [Concomitant]
     Dosage: UNK
     Route: 041
  5. REPATHA [Concomitant]
     Active Substance: EVOLOCUMAB
     Dosage: UNK UNK, Q15D
  6. AMLODIPINE BESYLATE. [Concomitant]
     Active Substance: AMLODIPINE BESYLATE
     Dosage: 5 MG, QD
  7. LOSARTAN. [Concomitant]
     Active Substance: LOSARTAN
     Dosage: 100 MG, QD
  8. LISPRO INSULIN [Concomitant]
     Active Substance: INSULIN LISPRO
     Dosage: 12 IU, TID
  9. ELIQUIS [Suspect]
     Active Substance: APIXABAN
     Dosage: 1 DF
     Dates: start: 20210226
  10. WARFARIN SODIUM. [Suspect]
     Active Substance: WARFARIN SODIUM
     Indication: CEREBROVASCULAR ACCIDENT
     Dosage: 1 DF, QD (2.5 MG)
     Route: 048
     Dates: start: 20210213
  11. ASPIRIN [ACETYLSALICYLIC ACID] [Concomitant]
     Active Substance: ASPIRIN
     Dosage: UNK UNK, QD

REACTIONS (9)
  - Hemiplegia [Recovering/Resolving]
  - Dyspepsia [Unknown]
  - International normalised ratio decreased [Unknown]
  - Blood pressure increased [Unknown]
  - Cerebrovascular accident [Unknown]
  - Unevaluable event [Unknown]
  - Fall [Unknown]
  - Extrasystoles [Unknown]
  - Platelet count decreased [Unknown]

NARRATIVE: CASE EVENT DATE: 20210128
